FAERS Safety Report 8042044-7 (Version None)
Quarter: 2012Q1

REPORT INFORMATION
  Report Type: 
  Country: None (occurrence: None)
  Receive Date: 20120112
  Receipt Date: 20120110
  Transmission Date: 20120608
  Serious: Yes (Hospitalization, Other)
  Sender: FDA-Public Use
  Company Number: US-BAYER-2012-000332

PATIENT
  Age: 44 Year
  Sex: Female
  Weight: 104.76 kg

DRUGS (1)
  1. MIRENA [Suspect]
     Dosage: 20 MCG/24HR, CONT
     Route: 015
     Dates: start: 20111202

REACTIONS (7)
  - MEDICAL DEVICE COMPLICATION [None]
  - DEVICE DISLOCATION [None]
  - ENDOMETRIOSIS [None]
  - ABDOMINAL ADHESIONS [None]
  - PERITONEAL DISORDER [None]
  - DYSPAREUNIA [None]
  - ABDOMINAL PAIN LOWER [None]
